FAERS Safety Report 17908429 (Version 1)
Quarter: 2020Q2

REPORT INFORMATION
  Report Type: Report from Study
  Country: IT (occurrence: IT)
  Receive Date: 20200617
  Receipt Date: 20200617
  Transmission Date: 20200714
  Serious: Yes (Other)
  Sender: FDA-Public Use
  Company Number: IT-PFIZER INC-2020232509

PATIENT
  Age: 38 Year
  Sex: Female

DRUGS (2)
  1. SALAZOPYRIN EN [Suspect]
     Active Substance: SULFASALAZINE
     Dosage: UNK
     Route: 048
  2. DIBASE [Concomitant]
     Active Substance: CHOLECALCIFEROL
     Dosage: UNK

REACTIONS (4)
  - Dermatitis [Recovering/Resolving]
  - Pyrexia [Recovering/Resolving]
  - Conjunctival hyperaemia [Recovering/Resolving]
  - Urticaria [Recovering/Resolving]

NARRATIVE: CASE EVENT DATE: 20191115
